FAERS Safety Report 6060353-8 (Version None)
Quarter: 2009Q1

REPORT INFORMATION
  Report Type: 
  Country: None (occurrence: None)
  Receive Date: 20090129
  Receipt Date: 20090129
  Transmission Date: 20090719
  Serious: Yes (Hospitalization)
  Sender: FDA-Public Use
  Company Number: None

PATIENT
  Age: 20 Year
  Sex: Male
  Weight: 65 kg

DRUGS (11)
  1. REGLAN [Suspect]
     Indication: IMPAIRED GASTRIC EMPTYING
     Dosage: 5MG Q6H PO
     Route: 048
     Dates: start: 20081003, end: 20081010
  2. AMANTADINE HCL [Concomitant]
  3. ACETYLCYSTEINE [Concomitant]
  4. MULTI-VITAMINS [Concomitant]
  5. LACTINEX [Concomitant]
  6. FLORASTOR [Concomitant]
  7. DUONEB [Concomitant]
  8. CHLORHEXADINE [Concomitant]
  9. PROPRANOLOL [Concomitant]
  10. PROTONIX [Concomitant]
  11. LOVENOX [Concomitant]

REACTIONS (2)
  - CONVULSION [None]
  - DYSTONIA [None]
